FAERS Safety Report 6867680-2 (Version None)
Quarter: 2010Q3

REPORT INFORMATION
  Report Type: 
  Country: None (occurrence: None)
  Receive Date: 20100722
  Receipt Date: 20100331
  Transmission Date: 20110219
  Serious: No
  Sender: FDA-Public Use
  Company Number: US-BAUSCH-2010BL001752

PATIENT
  Age: 63 Year
  Sex: Female
  Weight: 73 kg

DRUGS (2)
  1. OPCON-A [Suspect]
     Indication: MUSCLE TWITCHING
     Route: 047
     Dates: start: 20100315, end: 20100315
  2. OPCON-A [Suspect]
     Indication: OCULAR HYPERAEMIA
     Route: 047
     Dates: start: 20100315, end: 20100315

REACTIONS (1)
  - MYDRIASIS [None]
